FAERS Safety Report 8918057 (Version 1)
Quarter: 2012Q4

REPORT INFORMATION
  Report Type: 
  Country: US (occurrence: US)
  Receive Date: 20121120
  Receipt Date: 20121120
  Transmission Date: 20130627
  Serious: No
  Sender: FDA-Public Use
  Company Number: US-ASTRAZENECA-2012SE13701

PATIENT
  Age: 60 Year
  Sex: Male

DRUGS (3)
  1. NEXIUM [Suspect]
     Dosage: TWICE DAILY
     Route: 048
  2. PRILOSEC [Suspect]
     Route: 048
  3. PREVACID [Concomitant]

REACTIONS (7)
  - Dysphagia [Unknown]
  - Condition aggravated [Unknown]
  - Aphagia [Unknown]
  - Gastrooesophageal reflux disease [Unknown]
  - Vocal cord disorder [Unknown]
  - Intentional drug misuse [Unknown]
  - Drug ineffective [Unknown]
